FAERS Safety Report 18520274 (Version 1)
Quarter: 2020Q4

REPORT INFORMATION
  Report Type: Spontaneous
  Country: AR (occurrence: AR)
  Receive Date: 20201118
  Receipt Date: 20201118
  Transmission Date: 20210114
  Serious: Yes (Death, Other)
  Sender: FDA-Public Use
  Company Number: AR-PFIZER INC-2020430983

PATIENT
  Age: 79 Year
  Sex: Female

DRUGS (1)
  1. SUTENT [Suspect]
     Active Substance: SUNITINIB MALATE
     Indication: METASTATIC RENAL CELL CARCINOMA
     Dosage: 50 MG, CYCLIC (DAILY 4/2 REST SCHEME)
     Dates: start: 20200608

REACTIONS (9)
  - Fatigue [Unknown]
  - Blood pressure increased [Unknown]
  - General physical health deterioration [Unknown]
  - Malaise [Unknown]
  - Weight decreased [Unknown]
  - Death [Fatal]
  - Amnesia [Unknown]
  - Cerebrovascular accident [Unknown]
  - Platelet count decreased [Unknown]

NARRATIVE: CASE EVENT DATE: 20201115
